FAERS Safety Report 9843213 (Version 1)
Quarter: 2013Q4

REPORT INFORMATION
  Report Type: Spontaneous
  Country: US (occurrence: None)
  Receive Date: 20131219
  Receipt Date: 20131219
  Transmission Date: 20140711
  Serious: Yes (Hospitalization)
  Sender: FDA-Public Use
  Company Number: 163-20785-13022997

PATIENT
  Age: 62 Year
  Sex: Male

DRUGS (2)
  1. THALOMID (THALIDOMIDE) (CAPSULES) [Suspect]
     Indication: MYELODYSPLASTIC SYNDROME
     Route: 048
     Dates: start: 201203
  2. THALOMID (THALIDOMIDE) (CAPSULES) [Suspect]
     Indication: MYELOFIBROSIS
     Route: 048
     Dates: start: 201203

REACTIONS (3)
  - Cardiac failure congestive [None]
  - Myelodysplastic syndrome transformation [None]
  - Acute leukaemia [None]
